FAERS Safety Report 24895595 (Version 1)
Quarter: 2025Q1

REPORT INFORMATION
  Report Type: Report from Study
  Country: US (occurrence: US)
  Receive Date: 20250128
  Receipt Date: 20250128
  Transmission Date: 20250409
  Serious: No
  Sender: SANDOZ
  Company Number: US-SANDOZ-SDZ2025US004613

PATIENT
  Age: 38 Year
  Sex: Male

DRUGS (1)
  1. HYRIMOZ [Suspect]
     Active Substance: ADALIMUMAB-ADAZ
     Indication: Product used for unknown indication
     Dosage: 80 MG, Q2W
     Route: 050
     Dates: start: 20250123, end: 20250123

REACTIONS (3)
  - Circumstance or information capable of leading to medication error [Unknown]
  - Device mechanical issue [Unknown]
  - Device malfunction [Unknown]

NARRATIVE: CASE EVENT DATE: 20250123
